FAERS Safety Report 16949955 (Version 1)
Quarter: 2019Q4

REPORT INFORMATION
  Report Type: Spontaneous
  Country: SE (occurrence: SE)
  Receive Date: 20191023
  Receipt Date: 20191023
  Transmission Date: 20200122
  Serious: Yes (Hospitalization)
  Sender: FDA-Public Use
  Company Number: SE-TEVA-2019-SE-1125065

PATIENT
  Age: 79 Year
  Sex: Female

DRUGS (15)
  1. METOPROLOL. [Concomitant]
     Active Substance: METOPROLOL
  2. OPARAP 500 MG FILMDRAGERAD TABLETT [Concomitant]
     Dosage: VB
     Dates: start: 20180124
  3. CLOPIDOGREL [Concomitant]
     Active Substance: CLOPIDOGREL BISULFATE
     Dosage: 75 MG, 1 DAY
     Dates: start: 20190806
  4. TROMBYL 75 MG TABLETT [Concomitant]
     Active Substance: ASPIRIN
     Dosage: 75 MG, 1 DAY
     Dates: start: 20180125
  5. BRALTUS 10 MIKROGRAM/DOS INHALATIONSPULVER, HARD KAPSEL [Concomitant]
     Dosage: 1 DF
     Dates: start: 20190620
  6. FELODIPINE. [Concomitant]
     Active Substance: FELODIPINE
     Dosage: 10 MG , 1 DAY
  7. ELIQUIS 2,5 MG FILMDRAGERAD TABLETT [Concomitant]
     Dosage: 5 MG, 1 DAY
     Dates: start: 20190801
  8. PANOCOD 500 MG/30 MG TABLETT [Concomitant]
     Dosage: VB; 500 MG/30 MG
     Dates: start: 20180124
  9. FURIX 40 MG TABLETT [Concomitant]
     Dosage: 40 MG, 1 DAY
     Dates: start: 20190729
  10. ATROVENT [Concomitant]
     Active Substance: IPRATROPIUM BROMIDE
     Dosage: VB
     Route: 055
     Dates: start: 20190728
  11. LOCERYL 5 % MEDICINSKT NAGELLACK [Concomitant]
     Dosage: 5% MEDICAL NAIL POLISH
     Dates: start: 20180124
  12. SIMVASTATIN. [Suspect]
     Active Substance: SIMVASTATIN
     Route: 065
     Dates: end: 201908
  13. BUVENTOL EASYHALER 200 MIKROGRAM/DOS INHALATIONSPULVER [Concomitant]
     Dosage: VB
     Dates: start: 20190620
  14. CANDESARSTAD [Concomitant]
     Dosage: 32 MG, 1 DAY
  15. GABAPENTIN 1A FARMA 100 MG KAPSEL, HARD [Concomitant]
     Dosage: 600 MG,1 DAY
     Dates: start: 20190513

REACTIONS (2)
  - Asthenia [Recovered/Resolved]
  - Balance disorder [Recovered/Resolved]

NARRATIVE: CASE EVENT DATE: 20190814
